FAERS Safety Report 12553933 (Version 2)
Quarter: 2016Q3

REPORT INFORMATION
  Report Type: Spontaneous
  Country: IT (occurrence: IT)
  Receive Date: 20160713
  Receipt Date: 20160813
  Transmission Date: 20161109
  Serious: Yes (Hospitalization)
  Sender: FDA-Public Use
  Company Number: IT-TEVA-675315ACC

PATIENT
  Age: 82 Year
  Sex: Female

DRUGS (8)
  1. VANCOMYCIN [Interacting]
     Active Substance: VANCOMYCIN
     Route: 042
     Dates: start: 20150522
  2. VANCOMYCIN [Interacting]
     Active Substance: VANCOMYCIN
     Indication: STAPHYLOCOCCAL INFECTION
     Dosage: 1 GRAM DAILY;
     Route: 042
     Dates: start: 20150521, end: 20150521
  3. RIFAMPICIN [Interacting]
     Active Substance: RIFAMPIN
     Indication: STAPHYLOCOCCAL INFECTION
     Dosage: 300 MILLIGRAM DAILY;
     Route: 042
     Dates: start: 20150521
  4. FENTANYL. [Interacting]
     Active Substance: FENTANYL
     Indication: PROCEDURAL PAIN
     Dosage: 288 MICROGRAM DAILY;
     Route: 062
     Dates: start: 20150521, end: 20150527
  5. FENTANYL. [Suspect]
     Active Substance: FENTANYL
     Indication: ISCHAEMIC LIMB PAIN
     Dosage: 600 MICROGRAM DAILY;
     Route: 062
     Dates: start: 20150528, end: 20150602
  6. FENTANYL. [Interacting]
     Active Substance: FENTANYL
     Route: 048
     Dates: start: 20150602, end: 20150602
  7. LEVOFLOXACIN. [Interacting]
     Active Substance: LEVOFLOXACIN
     Indication: STAPHYLOCOCCAL INFECTION
     Dosage: 500 MILLIGRAM DAILY;
     Route: 048
     Dates: start: 20150521, end: 20150521
  8. LEVOFLOXACIN. [Interacting]
     Active Substance: LEVOFLOXACIN
     Route: 048
     Dates: start: 20150522

REACTIONS (9)
  - Hallucination [Recovered/Resolved]
  - Overdose [Unknown]
  - Altered state of consciousness [Recovered/Resolved]
  - Status epilepticus [Recovered/Resolved]
  - Drug interaction [Recovered/Resolved]
  - Somnolence [Recovered/Resolved]
  - Tremor [Unknown]
  - Miosis [Unknown]
  - Product use issue [Unknown]
